FAERS Safety Report 19200056 (Version 1)
Quarter: 2021Q2

REPORT INFORMATION
  Report Type: Spontaneous
  Country: US (occurrence: US)
  Receive Date: 20210430
  Receipt Date: 20210430
  Transmission Date: 20210717
  Serious: Yes (Other)
  Sender: FDA-Public Use
  Company Number: US-GLAXOSMITHKLINE-US2021AMR092327

PATIENT
  Age: 60 Year
  Sex: Female
  Weight: 74.84 kg

DRUGS (4)
  1. AZATHIOPRINE. [Suspect]
     Active Substance: AZATHIOPRINE
     Indication: PRODUCT USED FOR UNKNOWN INDICATION
     Dosage: UNK
  2. BENLYSTA [Suspect]
     Active Substance: BELIMUMAB
     Indication: SYSTEMIC LUPUS ERYTHEMATOSUS
     Dosage: UNK
  3. PFIZER?BIONTECH COVID?19 VACCINE [Suspect]
     Active Substance: TOZINAMERAN
     Dosage: UNK
     Dates: end: 20210416
  4. PFIZER?BIONTECH COVID?19 VACCINE [Suspect]
     Active Substance: TOZINAMERAN
     Indication: PROPHYLAXIS
     Dosage: UNK
     Dates: start: 20210326

REACTIONS (26)
  - Nausea [Recovered/Resolved]
  - Dry mouth [Recovered/Resolved]
  - Limb discomfort [Not Recovered/Not Resolved]
  - Decreased appetite [Unknown]
  - Retching [Recovered/Resolved]
  - Diarrhoea [Unknown]
  - Dysphagia [Unknown]
  - Bowel movement irregularity [Unknown]
  - Inflammation [Unknown]
  - Dehydration [Unknown]
  - Chills [Unknown]
  - Obstructive airways disorder [Unknown]
  - Cold sweat [Unknown]
  - Swelling [Unknown]
  - Myalgia [Unknown]
  - Pruritus [Unknown]
  - Rash macular [Unknown]
  - Headache [Not Recovered/Not Resolved]
  - Periorbital swelling [Unknown]
  - Sjogren^s syndrome [Unknown]
  - Vomiting [Recovered/Resolved]
  - Hypersensitivity [Unknown]
  - Fatigue [Unknown]
  - Oropharyngeal pain [Recovered/Resolved]
  - Photosensitivity reaction [Unknown]
  - Condition aggravated [Unknown]

NARRATIVE: CASE EVENT DATE: 20210416
